FAERS Safety Report 8971213 (Version 1)
Quarter: 2012Q4

REPORT INFORMATION
  Report Type: 
  Country: US (occurrence: US)
  Receive Date: 20121217
  Receipt Date: 20121217
  Transmission Date: 20130627
  Serious: Yes (Death, Hospitalization)
  Sender: FDA-Public Use
  Company Number: US-GLAXOSMITHKLINE-A1005389A

PATIENT
  Age: 70 Year
  Sex: Male

DRUGS (4)
  1. VOTRIENT [Suspect]
     Indication: RENAL CELL CARCINOMA
     Dosage: 400MG Per day
     Route: 048
     Dates: start: 201101, end: 20121003
  2. LISINOPRIL [Concomitant]
  3. COUMADIN [Concomitant]
  4. PROTONIX [Concomitant]

REACTIONS (1)
  - Renal cancer [Fatal]
